FAERS Safety Report 5841656-6 (Version None)
Quarter: 2008Q3

REPORT INFORMATION
  Report Type: 
  Country: None (occurrence: None)
  Receive Date: 20080811
  Receipt Date: 20080731
  Transmission Date: 20090109
  Serious: Yes (Other)
  Sender: FDA-Public Use
  Company Number: 1321116-2008-00002

PATIENT
  Age: 23 Year
  Sex: Female

DRUGS (10)
  1. HEPARIN LOCK-FLUSH [Suspect]
  2. PROTONIX [Concomitant]
  3. PRILOSEC [Concomitant]
  4. BACLOFEN [Concomitant]
  5. VALIUM [Concomitant]
  6. ZANAFLEX [Concomitant]
  7. CLEXA (CITALOPRAM HYDROBROMIDE) [Concomitant]
  8. MUCINEX [Concomitant]
  9. MULTIVITAMIN (VIGRAN) [Concomitant]
  10. ASCORBIC ACID [Concomitant]

REACTIONS (3)
  - CHILLS [None]
  - PYREXIA [None]
  - REFUSAL OF TREATMENT BY PATIENT [None]
